FAERS Safety Report 21762506 (Version 1)
Quarter: 2022Q4

REPORT INFORMATION
  Report Type: Spontaneous
  Country: US (occurrence: None)
  Receive Date: 20221220
  Receipt Date: 20221220
  Transmission Date: 20230112
  Serious: No
  Sender: FDA-Public Use
  Company Number: None

PATIENT

DRUGS (1)
  1. PROBIOTICS NOS [Suspect]
     Active Substance: PROBIOTICS NOS

REACTIONS (5)
  - Product appearance confusion [None]
  - Product use complaint [None]
  - Product design confusion [None]
  - Circumstance or information capable of leading to medication error [None]
  - Wrong route [None]
